FAERS Safety Report 5483278-5 (Version None)
Quarter: 2007Q4

REPORT INFORMATION
  Report Type: 
  Country: None (occurrence: None)
  Receive Date: 20071012
  Receipt Date: 20071004
  Transmission Date: 20080405
  Serious: Yes (Other)
  Sender: FDA-Public Use
  Company Number: PHBS2007IT16602

PATIENT
  Age: 65 Year
  Sex: Female

DRUGS (3)
  1. ZOLEDRONIC ACID [Suspect]
     Indication: BREAST CANCER METASTATIC
     Dosage: UNK, QMO
     Dates: start: 20040101
  2. TAMOXIFEN CITRATE [Concomitant]
  3. STEROIDS NOS [Concomitant]

REACTIONS (12)
  - BONE DISORDER [None]
  - BREATH ODOUR [None]
  - COMPUTERISED TOMOGRAM ABNORMAL [None]
  - HYPERBARIC OXYGEN THERAPY [None]
  - MAXILLOFACIAL OPERATION [None]
  - METASTASES TO BONE [None]
  - NUCLEAR MAGNETIC RESONANCE IMAGING ABNORMAL [None]
  - OSTEOMYELITIS [None]
  - OSTEONECROSIS [None]
  - OSTEOSCLEROSIS [None]
  - PAIN IN JAW [None]
  - PRIMARY SEQUESTRUM [None]
